FAERS Safety Report 6133582-2 (Version None)
Quarter: 2009Q1

REPORT INFORMATION
  Report Type: 
  Country: None (occurrence: None)
  Receive Date: 20090326
  Receipt Date: 20090319
  Transmission Date: 20090719
  Serious: Yes (Other)
  Sender: FDA-Public Use
  Company Number: US-CELGENEUS-163-21880-09010201

PATIENT
  Age: 57 Year
  Sex: Female
  Weight: 52.4 kg

DRUGS (31)
  1. REVLIMID [Suspect]
     Indication: MANTLE CELL LYMPHOMA
     Route: 048
     Dates: start: 20080625, end: 20080910
  2. RITUXIMAB [Suspect]
     Indication: MANTLE CELL LYMPHOMA
     Route: 065
     Dates: start: 20080625, end: 20080910
  3. POTASSIUM CHLORIDE [Concomitant]
     Indication: DRUG USE FOR UNKNOWN INDICATION
     Route: 048
     Dates: start: 20040811
  4. POTASSIUM CHLORIDE [Concomitant]
     Route: 048
     Dates: start: 20081015
  5. LEVAQUIN [Concomitant]
     Indication: DRUG USE FOR UNKNOWN INDICATION
     Route: 048
     Dates: start: 20080926
  6. VALTREX [Concomitant]
     Indication: INFECTION PROPHYLAXIS
     Route: 048
     Dates: start: 20080926
  7. HYDROXYZINE [Concomitant]
     Route: 048
     Dates: start: 20081124
  8. AMBIEN [Concomitant]
     Route: 048
     Dates: start: 20090210
  9. ATIVAN [Concomitant]
     Indication: ANXIETY
     Route: 048
     Dates: start: 20081121
  10. ATIVAN [Concomitant]
     Indication: NAUSEA
  11. DARVON [Concomitant]
     Indication: PAIN
     Dosage: 65-130 MG
     Route: 048
     Dates: start: 20080926
  12. IMODIUM [Concomitant]
     Dosage: 2-4 MG
     Route: 048
     Dates: start: 20081121
  13. IMODIUM [Concomitant]
     Route: 048
     Dates: start: 20080926
  14. PHENERGAN [Concomitant]
     Indication: NAUSEA
     Route: 048
     Dates: start: 20080926
  15. PHENERGAN [Concomitant]
     Indication: VOMITING
  16. ZOFRAN [Concomitant]
     Indication: NAUSEA
     Route: 048
     Dates: start: 20081121
  17. ZOFRAN [Concomitant]
     Indication: VOMITING
  18. ACTIGALL [Concomitant]
     Indication: PROPHYLAXIS
     Route: 048
  19. BACTRIM DS [Concomitant]
     Indication: INFECTION PROPHYLAXIS
     Route: 048
  20. BACTRIM DS [Concomitant]
     Route: 048
     Dates: start: 20081204
  21. FAMOTIDINE [Concomitant]
     Indication: ABDOMINAL DISCOMFORT
     Route: 048
     Dates: start: 20081027
  22. FOLIC ACID [Concomitant]
     Indication: SUPPLEMENTATION THERAPY
     Route: 048
     Dates: start: 20090203
  23. ZYRTEC [Concomitant]
     Route: 048
  24. IFOSFAMIDE [Concomitant]
     Indication: DRUG USE FOR UNKNOWN INDICATION
     Route: 065
  25. ETOPOSIDE [Concomitant]
     Indication: DRUG USE FOR UNKNOWN INDICATION
     Route: 065
  26. ZOLPIDEM [Concomitant]
     Indication: DRUG USE FOR UNKNOWN INDICATION
     Route: 048
     Dates: start: 20090210
  27. HEPARIN [Concomitant]
     Indication: DRUG USE FOR UNKNOWN INDICATION
     Route: 051
     Dates: start: 20081003
  28. LEVOFLOXACIN [Concomitant]
     Indication: DRUG USE FOR UNKNOWN INDICATION
     Route: 048
     Dates: start: 20080926
  29. URSODIOL [Concomitant]
     Indication: DRUG USE FOR UNKNOWN INDICATION
     Route: 048
     Dates: start: 20081004
  30. FLUCONAZOLE [Concomitant]
     Indication: DRUG USE FOR UNKNOWN INDICATION
     Route: 048
     Dates: start: 20080926
  31. ALLOPURINOL [Concomitant]
     Indication: DRUG USE FOR UNKNOWN INDICATION
     Route: 048
     Dates: start: 20080626

REACTIONS (3)
  - BLOOD ALKALINE PHOSPHATASE INCREASED [None]
  - NEUTROPENIA [None]
  - THROMBOCYTOPENIA [None]
